FAERS Safety Report 5739021-5 (Version None)
Quarter: 2008Q2

REPORT INFORMATION
  Report Type: 
  Country: None (occurrence: None)
  Receive Date: 20080515
  Receipt Date: 20080508
  Transmission Date: 20081010
  Serious: Yes (Hospitalization, Other)
  Sender: FDA-Public Use
  Company Number: US-JNJFOC-20080502428

PATIENT
  Age: 50 Year
  Sex: Male

DRUGS (5)
  1. RISPERDAL CONSTA [Suspect]
     Route: 030
  2. RISPERDAL CONSTA [Suspect]
     Indication: DRUG USE FOR UNKNOWN INDICATION
     Route: 030
  3. KLONOPIN [Concomitant]
  4. RAZADYNE [Concomitant]
     Route: 048
  5. RISPERDAL [Concomitant]

REACTIONS (2)
  - PSYCHOTIC DISORDER [None]
  - RHABDOMYOLYSIS [None]
